FAERS Safety Report 8063000-9 (Version None)
Quarter: 2012Q1

REPORT INFORMATION
  Report Type: 
  Country: None (occurrence: None)
  Receive Date: 20120117
  Receipt Date: 20120102
  Transmission Date: 20120608
  Serious: Yes (Hospitalization, Other)
  Sender: FDA-Public Use
  Company Number: 2012MA000003

PATIENT
  Sex: Female
  Weight: 89.3586 kg

DRUGS (30)
  1. PREDNISONE TAB [Concomitant]
  2. LASIX [Concomitant]
  3. ACCOLATE [Concomitant]
  4. COUMADIN [Concomitant]
  5. LISINOPRIL [Concomitant]
  6. CARDIZEM [Concomitant]
  7. ALBUTEROL [Concomitant]
  8. ZOCOR [Concomitant]
  9. HUMULIN R [Concomitant]
  10. ALLEGRA [Concomitant]
  11. DIGOXIN [Suspect]
     Dosage: 0.25 MG;QD;PO
     Route: 048
     Dates: start: 20051003, end: 20071210
  12. VERAPAMIL [Concomitant]
  13. SIMVASTATIN [Concomitant]
  14. POTASSIUM CHLORIDE [Concomitant]
  15. RYTHMOL [Concomitant]
  16. THEOPHYLLINE [Concomitant]
  17. ACTOS [Concomitant]
  18. ADVAIR DISKUS 100/50 [Concomitant]
  19. THEO-DUR [Concomitant]
  20. LOVENOX [Concomitant]
  21. ALBUTEROL [Concomitant]
  22. AZMACORT [Concomitant]
  23. ACCUPRIL [Concomitant]
  24. METFORMIN HCL [Concomitant]
  25. MEDROL [Concomitant]
  26. ALLEGRA [Concomitant]
  27. COZAAR [Concomitant]
  28. LANTUS [Concomitant]
  29. PROTONIX [Concomitant]
  30. AMARYL [Concomitant]

REACTIONS (30)
  - BLOOD PRESSURE INADEQUATELY CONTROLLED [None]
  - VAGINAL HAEMORRHAGE [None]
  - LEFT ATRIAL DILATATION [None]
  - LEFT VENTRICULAR DYSFUNCTION [None]
  - CONDITION AGGRAVATED [None]
  - EJECTION FRACTION DECREASED [None]
  - MYOCARDIAL INFARCTION [None]
  - SUPRAVENTRICULAR TACHYCARDIA [None]
  - ASTHMA [None]
  - ATRIAL FIBRILLATION [None]
  - VENTRICULAR EXTRASYSTOLES [None]
  - CARDIAC DISORDER [None]
  - BUNDLE BRANCH BLOCK LEFT [None]
  - BRONCHOSPASM [None]
  - UTERINE LEIOMYOMA [None]
  - MITRAL VALVE INCOMPETENCE [None]
  - BLOOD PRESSURE SYSTOLIC INCREASED [None]
  - OBESITY [None]
  - SUPRAVENTRICULAR EXTRASYSTOLES [None]
  - TYPE 2 DIABETES MELLITUS [None]
  - WEIGHT INCREASED [None]
  - CARDIOMEGALY [None]
  - INTERNATIONAL NORMALISED RATIO INCREASED [None]
  - ISCHAEMIC CARDIOMYOPATHY [None]
  - OEDEMA [None]
  - LEFT VENTRICULAR HYPERTROPHY [None]
  - HYPERLIPIDAEMIA [None]
  - HEART RATE INCREASED [None]
  - PALPITATIONS [None]
  - ELECTROCARDIOGRAM ST-T SEGMENT ABNORMAL [None]
